FAERS Safety Report 9883323 (Version 1)
Quarter: 2014Q1

REPORT INFORMATION
  Report Type: Spontaneous
  Country: CR (occurrence: CR)
  Receive Date: 20140210
  Receipt Date: 20140210
  Transmission Date: 20141002
  Serious: Yes (Hospitalization)
  Sender: FDA-Public Use
  Company Number: CR-AMGEN-CRISP2014008838

PATIENT
  Age: 36 Year
  Sex: Female
  Weight: 94 kg

DRUGS (8)
  1. ENBREL [Suspect]
     Indication: PRODUCT USED FOR UNKNOWN INDICATION
     Dosage: 50 MG, WEEKLY
     Route: 030
     Dates: start: 2011, end: 20131101
  2. ATENOLOL [Concomitant]
     Dosage: UNK
  3. METHOTREXAT                        /00113801/ [Concomitant]
     Dosage: UNK
  4. ENALAPRIL [Concomitant]
     Dosage: UNK
  5. HYDRALAZINE [Concomitant]
     Dosage: UNK
  6. METHYLDOPA [Concomitant]
     Dosage: UNK
  7. HYDROCHLOORTHIAZIDE [Concomitant]
     Dosage: UNK
  8. CIPROFLOXACINA                     /00697201/ [Concomitant]
     Dosage: UNK

REACTIONS (4)
  - Off label use [Unknown]
  - Arthritis [Unknown]
  - Mobility decreased [Unknown]
  - Anogenital warts [Unknown]
